FAERS Safety Report 4955234-4 (Version None)
Quarter: 2006Q1

REPORT INFORMATION
  Report Type: 
  Country: None (occurrence: None)
  Receive Date: 20060328
  Receipt Date: 20060320
  Transmission Date: 20060701
  Serious: Yes (Death, Hospitalization)
  Sender: FDA-Public Use
  Company Number: DE-JNJFOC-20050300048

PATIENT
  Sex: Male

DRUGS (1)
  1. INFLIXIMAB, RECOMBINANT [Suspect]
     Indication: CACHEXIA
     Dosage: NO DRUG GIVEN
     Route: 042

REACTIONS (5)
  - ASTHENIA [None]
  - NAUSEA [None]
  - PANCREATIC CARCINOMA [None]
  - VOMITING [None]
  - WEIGHT DECREASED [None]
